FAERS Safety Report 4800203-8 (Version None)
Quarter: 2005Q4

REPORT INFORMATION
  Report Type: 
  Country: None (occurrence: None)
  Receive Date: 20051017
  Receipt Date: 20051007
  Transmission Date: 20060501
  Serious: Yes (Hospitalization, Other)
  Sender: FDA-Public Use
  Company Number: US-ABBOTT-05P-163-0313135-00

PATIENT
  Sex: Female
  Weight: 42.222 kg

DRUGS (16)
  1. HUMIRA [Suspect]
     Indication: RHEUMATOID ARTHRITIS
     Route: 058
     Dates: start: 20040101, end: 20040601
  2. HUMIRA [Suspect]
     Route: 058
     Dates: start: 20040901, end: 20050606
  3. HUMIRA [Suspect]
     Route: 058
     Dates: start: 20050624, end: 20050928
  4. LEVOTHYROXINE SODIUM [Concomitant]
     Indication: HYPOTHYROIDISM
     Route: 048
     Dates: start: 19900101
  5. PREDNISONE [Concomitant]
     Indication: RHEUMATOID ARTHRITIS
     Route: 048
     Dates: start: 19980101, end: 20050606
  6. PREDNISONE [Concomitant]
     Route: 048
     Dates: start: 20050621
  7. NATALOL [Concomitant]
     Indication: BLOOD PRESSURE INCREASED
     Route: 048
  8. FUROSEMIDE [Concomitant]
     Indication: DIURETIC THERAPY
     Route: 048
  9. POTASSIUM CHLORIDE [Concomitant]
     Indication: ELECTROLYTE SUBSTITUTION THERAPY
     Route: 048
  10. FOLIC ACID [Concomitant]
     Indication: RHEUMATOID ARTHRITIS
     Route: 048
  11. TRAMADOL HYDROCHLORIDE [Concomitant]
     Indication: PAIN
     Route: 048
  12. AMITRIPTYLINE HCL [Concomitant]
     Indication: PAIN IN EXTREMITY
     Route: 048
  13. NULEV [Concomitant]
     Indication: IRRITABLE BOWEL SYNDROME
     Route: 048
  14. RANITIDINE HYDROCHLORIDE [Concomitant]
     Indication: PROPHYLAXIS AGAINST GASTROINTESTINAL ULCER
     Route: 048
  15. LOMOTIL [Concomitant]
     Indication: DIARRHOEA
     Route: 048
  16. FEMERA [Concomitant]
     Indication: BREAST CANCER
     Route: 048
     Dates: start: 20010101

REACTIONS (4)
  - COUGH [None]
  - PAIN [None]
  - PNEUMONIA [None]
  - THYROID NEOPLASM [None]
